FAERS Safety Report 7626684-2 (Version None)
Quarter: 2011Q3

REPORT INFORMATION
  Report Type: 
  Country: None (occurrence: None)
  Receive Date: 20110721
  Receipt Date: 20110707
  Transmission Date: 20111222
  Serious: Yes (Other)
  Sender: FDA-Public Use
  Company Number: DE-ROCHE-790484

PATIENT
  Age: 38 Year
  Sex: Male

DRUGS (2)
  1. CELLCEPT [Suspect]
     Route: 065
     Dates: start: 20110101
  2. CELLCEPT [Suspect]
     Indication: CORNEAL TRANSPLANT
     Route: 065
     Dates: start: 20081204

REACTIONS (2)
  - HERPES VIRUS INFECTION [None]
  - ULCERATIVE KERATITIS [None]
